FAERS Safety Report 11540615 (Version 1)
Quarter: 2015Q3

REPORT INFORMATION
  Report Type: Spontaneous
  Country: US (occurrence: US)
  Receive Date: 20150923
  Receipt Date: 20150923
  Transmission Date: 20151125
  Serious: No
  Sender: FDA-Public Use
  Company Number: US-BEH-2015051132

PATIENT
  Age: 42 Year
  Sex: Female
  Weight: 147 kg

DRUGS (35)
  1. NORMAL SALINE [Concomitant]
     Active Substance: SODIUM CHLORIDE
     Dosage: 0.9% PRIOR TO INFUSION
     Route: 042
  2. SODIUM CHLORIDE. [Concomitant]
     Active Substance: SODIUM CHLORIDE
     Dosage: 0.9% NSI-50
     Route: 042
  3. SELENIUM [Concomitant]
     Active Substance: SELENIUM
     Dosage: 1 TAB DAILY
     Route: 048
  4. LEVAQUIN [Concomitant]
     Active Substance: LEVOFLOXACIN
     Dosage: 1 TAB DAILY
     Route: 048
  5. VITAMIN B [Concomitant]
     Active Substance: VITAMIN B
     Dosage: 1000MCG, 1 DOSE DAILY
     Route: 048
  6. KLONOPIN [Concomitant]
     Active Substance: CLONAZEPAM
     Route: 048
  7. MAXAIR [Concomitant]
     Active Substance: PIRBUTEROL ACETATE
     Dosage: 2 PUFFS AS NEEDED
  8. FLUOXETINE 60 MG [Concomitant]
  9. EPIPEN [Concomitant]
     Active Substance: EPINEPHRINE
     Indication: ANAPHYLACTIC REACTION
     Dosage: 0.3 MG AS NEEDED
     Route: 030
  10. FLONASE [Concomitant]
     Active Substance: FLUTICASONE PROPIONATE
     Dosage: 2 PUFFS AS NEEDED
  11. RESTORIL [Concomitant]
     Active Substance: TEMAZEPAM
     Dosage: AT BEDTIME
     Route: 048
  12. VITAMIN D [Concomitant]
     Active Substance: CHOLECALCIFEROL
     Dosage: 5000 IU EVERY WEEK
     Route: 048
  13. FLONASE [Concomitant]
     Active Substance: FLUTICASONE PROPIONATE
  14. SUPRAX [Concomitant]
     Active Substance: CEFIXIME
  15. DIPHENHYDRAMINE HYDROCHLORIDE. [Concomitant]
     Active Substance: DIPHENHYDRAMINE HYDROCHLORIDE
  16. PRIVIGEN [Suspect]
     Active Substance: HUMAN IMMUNOGLOBULIN G
     Route: 042
  17. DEXAMETHASONE. [Concomitant]
     Active Substance: DEXAMETHASONE
     Indication: ANAPHYLACTIC REACTION
     Route: 042
  18. PROZAC [Concomitant]
     Active Substance: FLUOXETINE HYDROCHLORIDE
     Route: 048
  19. SALINE NASAL SPRAY [Concomitant]
     Active Substance: SODIUM CHLORIDE
  20. VITAMIN C [Concomitant]
     Active Substance: ASCORBIC ACID
     Route: 048
  21. FLOVENT [Concomitant]
     Active Substance: FLUTICASONE PROPIONATE
     Dosage: 2 PUFFS AS NEEDED
  22. MULTIVITAMIN [Concomitant]
     Active Substance: VITAMINS
     Dosage: 1 DOSE AS DIRECTED
     Route: 048
  23. CLONIDINE. [Concomitant]
     Active Substance: CLONIDINE
     Route: 048
  24. GLUCOSAMINE [Concomitant]
     Active Substance: GLUCOSAMINE
  25. RESTORIL [Concomitant]
     Active Substance: TEMAZEPAM
  26. LISINOPRIL. [Concomitant]
     Active Substance: LISINOPRIL
     Dosage: 1 TAB AS NEEDED
     Route: 048
  27. ZINC POWDER [Concomitant]
     Route: 048
  28. FLUOXETINE 80 MG [Concomitant]
  29. SUPER B COMPLEX [Concomitant]
     Active Substance: CYANOCOBALAMIN\DEXPANTHENOL\NIACINAMIDE\PYRIDOXINE HYDROCHLORIDE\RIBOFLAVIN 5^-PHOSPHATE SODIUM\THIAMINE HYDROCHLORIDE\VITAMIN B COMPLEX
  30. VITAMIN A [Concomitant]
     Active Substance: VITAMIN A
     Dosage: 1 DOSE AS DIRECTED
  31. HYDROCHLOROTHIAZIDE. [Concomitant]
     Active Substance: HYDROCHLOROTHIAZIDE
  32. IBUPROFEN. [Concomitant]
     Active Substance: IBUPROFEN
  33. PRIVIGEN [Suspect]
     Active Substance: HUMAN IMMUNOGLOBULIN G
     Indication: IMMUNODEFICIENCY COMMON VARIABLE
     Route: 042
  34. DIPHENHYDRAMINE. [Concomitant]
     Active Substance: DIPHENHYDRAMINE
     Dosage: 25 MG AS DIRECTED
     Route: 048
  35. PROBIOTIC [Concomitant]
     Active Substance: PROBIOTICS NOS

REACTIONS (6)
  - Nausea [Unknown]
  - Vomiting [Unknown]
  - Diarrhoea [Unknown]
  - Sinusitis [Unknown]
  - Muscle spasms [Unknown]
  - Migraine [Unknown]

NARRATIVE: CASE EVENT DATE: 20150512
